FAERS Safety Report 14413651 (Version 4)
Quarter: 2018Q1

REPORT INFORMATION
  Report Type: Report from Study
  Country: US (occurrence: US)
  Receive Date: 20180119
  Receipt Date: 20180228
  Transmission Date: 20180509
  Serious: Yes (Hospitalization)
  Sender: FDA-Public Use
  Company Number: US-TESARO, INC-US-2018TSO00141

PATIENT
  Age: 56 Year
  Sex: Male

DRUGS (6)
  1. FLOMAX [Concomitant]
     Active Substance: TAMSULOSIN HYDROCHLORIDE
     Indication: URINARY RETENTION
     Dosage: UNK MG, QD
     Route: 048
     Dates: start: 20171222
  2. MARINOL [Concomitant]
     Active Substance: DRONABINOL
     Indication: WEIGHT DECREASED
     Dosage: UNK MG, BID
     Route: 048
     Dates: start: 20171229
  3. TIOTROPIUM BROMIDE [Concomitant]
     Active Substance: TIOTROPIUM BROMIDE
     Indication: CHRONIC OBSTRUCTIVE PULMONARY DISEASE
     Dosage: UNK  ?G QD
     Route: 055
     Dates: start: 20171102
  4. NIRAPARIB [Suspect]
     Active Substance: NIRAPARIB
     Indication: NON-SMALL CELL LUNG CANCER
     Dosage: 200 MG, QD
     Route: 048
     Dates: start: 20171020, end: 20180107
  5. PEMBROLIZUMAB. [Suspect]
     Active Substance: PEMBROLIZUMAB
     Indication: NON-SMALL CELL LUNG CANCER
     Dosage: 108 MG, Q3W
     Route: 042
     Dates: start: 20171208, end: 20171208
  6. PEMBROLIZUMAB. [Suspect]
     Active Substance: PEMBROLIZUMAB
     Dosage: 200 MG, Q3W
     Route: 042
     Dates: start: 20171229

REACTIONS (1)
  - Atrial fibrillation [Recovered/Resolved]

NARRATIVE: CASE EVENT DATE: 20180108
